FAERS Safety Report 6171130-1 (Version None)
Quarter: 2009Q2

REPORT INFORMATION
  Report Type: 
  Country: None (occurrence: None)
  Receive Date: 20090427
  Receipt Date: 20090421
  Transmission Date: 20091009
  Serious: Yes (Disabling)
  Sender: FDA-Public Use
  Company Number: JHP200900124

PATIENT
  Sex: Female

DRUGS (2)
  1. KETALAR [Suspect]
     Indication: PAIN
     Dosage: 14 MG PER SPRAY - UP TO 4 SPRAYS (2 PER NOSTRIL) EVERY 4 HOURS AS NECESSARY, NASAL
     Route: 045
  2. METHADONE HCL [Concomitant]

REACTIONS (1)
  - ANOSMIA [None]
